FAERS Safety Report 4740813-X (Version None)
Quarter: 2005Q3

REPORT INFORMATION
  Report Type: 
  Country: None (occurrence: None)
  Receive Date: 20050810
  Receipt Date: 20040824
  Transmission Date: 20060218
  Serious: No
  Sender: FDA-Public Use
  Company Number: US-GLAXOSMITHKLINE-A0523274A

PATIENT
  Age: 42 Year
  Sex: Female

DRUGS (1)
  1. TAGAMET HB 200 [Suspect]
     Dates: start: 20040821

REACTIONS (2)
  - DIZZINESS [None]
  - SOMNOLENCE [None]
